FAERS Safety Report 5229059-9 (Version None)
Quarter: 2007Q1

REPORT INFORMATION
  Report Type: 
  Country: None (occurrence: None)
  Receive Date: 20061201
  Receipt Date: 20060802
  Transmission Date: 20070707
  Serious: No
  Sender: FDA-Public Use
  Company Number: US200608000800

PATIENT
  Age: 55 Year
  Sex: Female

DRUGS (2)
  1. CYMBALTA [Suspect]
     Indication: NEUROPATHY
     Dosage: 30 MG, DAILY (1/D)
     Dates: start: 20060731
  2. ANITHYPERTENSIVES [Concomitant]

REACTIONS (4)
  - BLOOD PRESSURE INCREASED [None]
  - FEELING ABNORMAL [None]
  - PALPITATIONS [None]
  - SOMNOLENCE [None]
